FAERS Safety Report 8281955-4 (Version None)
Quarter: 2012Q2

REPORT INFORMATION
  Report Type: 
  Country: None (occurrence: None)
  Receive Date: 20120413
  Receipt Date: 20120409
  Transmission Date: 20120825
  Serious: No
  Sender: FDA-Public Use
  Company Number: US-PFIZER INC-2012088519

PATIENT
  Sex: Male
  Weight: 93.878 kg

DRUGS (10)
  1. ADVAIR DISKUS 100/50 [Concomitant]
     Dosage: UNK
  2. OXYCODONE [Concomitant]
     Indication: BACK DISORDER
     Dosage: 15 MG, AS NEEDED
  3. NEXIUM [Concomitant]
     Dosage: UNK
  4. MELOXICAM [Concomitant]
     Dosage: UNK
  5. CLONAZEPAM [Concomitant]
     Indication: ANXIETY
     Dosage: UNK
  6. LOVASTATIN [Concomitant]
     Dosage: UNK
  7. CHANTIX [Suspect]
     Indication: SMOKING CESSATION THERAPY
     Dosage: 0.5 MG, 1X/DAY
     Route: 048
     Dates: start: 20120404
  8. SPIRIVA [Concomitant]
     Dosage: UNK
  9. CHANTIX [Suspect]
     Dosage: 0.5 MG, 2X/DAY
     Route: 048
  10. SINGULAIR [Concomitant]
     Dosage: UNK

REACTIONS (2)
  - ANXIETY [None]
  - FEELING JITTERY [None]
